FAERS Safety Report 22950156 (Version 3)
Quarter: 2023Q4

REPORT INFORMATION
  Report Type: Spontaneous
  Country: JP (occurrence: JP)
  Receive Date: 20230915
  Receipt Date: 20231002
  Transmission Date: 20240110
  Serious: Yes (Hospitalization, Other)
  Sender: FDA-Public Use
  Company Number: JP-GSKNCCC-Case-01806808_AE-75002

PATIENT

DRUGS (1)
  1. ATOVAQUONE [Suspect]
     Active Substance: ATOVAQUONE
     Indication: Antifungal prophylaxis
     Dosage: 10 ML, 1D
     Route: 048
     Dates: start: 20230816

REACTIONS (3)
  - Follicular lymphoma [Unknown]
  - Therapy cessation [Unknown]
  - Product use complaint [Unknown]

NARRATIVE: CASE EVENT DATE: 20230911
